FAERS Safety Report 8837830 (Version 1)
Quarter: 2012Q4

REPORT INFORMATION
  Report Type: 
  Country: BR (occurrence: BR)
  Receive Date: 20121012
  Receipt Date: 20121012
  Transmission Date: 20130627
  Serious: Yes (Other)
  Sender: FDA-Public Use
  Company Number: BR-BAYER-2012-103557

PATIENT
  Sex: Female
  Weight: 56 kg

DRUGS (3)
  1. QLAIRA [Suspect]
     Indication: MENSTRUAL CYCLE MANAGEMENT
     Dosage: 1 DF, QD
     Route: 048
     Dates: start: 201207, end: 20120927
  2. QLAIRA [Suspect]
     Indication: CONTRACEPTION
  3. ANTIALLERGIC AGENTS, EXCL CORTICOSTEROIDS [Concomitant]
     Dosage: 1 DF, QD
     Route: 048
     Dates: start: 20120921, end: 20120923

REACTIONS (3)
  - Menstruation delayed [Not Recovered/Not Resolved]
  - Pregnancy on oral contraceptive [Not Recovered/Not Resolved]
  - Nephrolithiasis [None]
